FAERS Safety Report 14314437 (Version 5)
Quarter: 2022Q4

REPORT INFORMATION
  Report Type: Spontaneous
  Country: US (occurrence: None)
  Receive Date: 20171221
  Receipt Date: 20221004
  Transmission Date: 20230113
  Serious: Yes (Other)
  Sender: FDA-Public Use
  Company Number: 2017SF28535

PATIENT
  Age: 17896 Day
  Sex: Female
  Weight: 66.2 kg

DRUGS (63)
  1. NEXIUM [Suspect]
     Active Substance: ESOMEPRAZOLE MAGNESIUM
     Indication: Gastrooesophageal reflux disease
     Route: 048
     Dates: start: 2002
  2. NEXIUM [Suspect]
     Active Substance: ESOMEPRAZOLE MAGNESIUM
     Indication: Gastrooesophageal reflux disease
     Route: 048
     Dates: start: 2005, end: 2010
  3. PRILOSEC [Suspect]
     Active Substance: OMEPRAZOLE MAGNESIUM
     Indication: Gastrooesophageal reflux disease
     Dosage: GENERIC
     Route: 065
     Dates: start: 20140107
  4. PRILOSEC [Suspect]
     Active Substance: OMEPRAZOLE MAGNESIUM
     Indication: Gastrooesophageal reflux disease
     Dosage: GENERIC20.0MG UNKNOWN
     Route: 065
     Dates: start: 2014, end: 2016
  5. PRILOSEC [Suspect]
     Active Substance: OMEPRAZOLE MAGNESIUM
     Indication: Gastrooesophageal reflux disease
     Dosage: 20.0MG UNKNOWN
     Route: 048
     Dates: start: 20140909
  6. PRILOSEC [Suspect]
     Active Substance: OMEPRAZOLE MAGNESIUM
     Indication: Gastrooesophageal reflux disease
     Dosage: GENERIC20.0MG UNKNOWN
     Route: 065
     Dates: start: 20160217
  7. PREVACID [Suspect]
     Active Substance: LANSOPRAZOLE
     Indication: Gastrooesophageal reflux disease
     Dosage: 30.0MG UNKNOWN
     Route: 048
     Dates: start: 2002, end: 2003
  8. PREVACID [Suspect]
     Active Substance: LANSOPRAZOLE
     Indication: Gastrooesophageal reflux disease
     Dosage: 30.0MG UNKNOWN
     Route: 065
     Dates: end: 2014
  9. PROTONIX [Suspect]
     Active Substance: PANTOPRAZOLE SODIUM
     Indication: Gastrooesophageal reflux disease
     Dosage: 40.0MG UNKNOWN
     Route: 065
     Dates: start: 2002, end: 2014
  10. PROTONIX [Suspect]
     Active Substance: PANTOPRAZOLE SODIUM
     Indication: Gastrooesophageal reflux disease
     Dosage: 40.0MG UNKNOWN
     Route: 065
     Dates: start: 2007
  11. PROTONIX [Suspect]
     Active Substance: PANTOPRAZOLE SODIUM
     Indication: Gastrooesophageal reflux disease
     Dosage: GENERIC 40MG UNKNOWN
     Route: 065
     Dates: start: 2010
  12. CALCIUM ACETATE [Concomitant]
     Active Substance: CALCIUM ACETATE
     Indication: Renal disorder
     Route: 048
     Dates: start: 2015
  13. METOPROLOL [Concomitant]
     Active Substance: METOPROLOL
     Indication: Hypertension
     Route: 065
     Dates: start: 2006
  14. METOPROLOL [Concomitant]
     Active Substance: METOPROLOL
     Indication: Hypertension
     Dates: start: 20170119
  15. VITAMIN D2 [Concomitant]
     Active Substance: ERGOCALCIFEROL
     Indication: Vitamin supplementation
     Route: 065
     Dates: start: 2015
  16. PROCRIT [Concomitant]
     Active Substance: ERYTHROPOIETIN
     Indication: Renal disorder
     Route: 065
     Dates: start: 2014
  17. FLUVIRIN NOS [Concomitant]
     Active Substance: INFLUENZA VIRUS VACCINE
     Route: 030
  18. CITALOPRAM [Concomitant]
     Active Substance: CITALOPRAM HYDROBROMIDE
     Indication: Depression
     Route: 048
  19. CITALOPRAM [Concomitant]
     Active Substance: CITALOPRAM HYDROBROMIDE
     Indication: Depression
     Dates: start: 20160217
  20. CITALOPRAM [Concomitant]
     Active Substance: CITALOPRAM HYDROBROMIDE
     Indication: Depression
     Route: 065
     Dates: start: 2008
  21. SODIUM BICARBONATE [Concomitant]
     Active Substance: SODIUM BICARBONATE
     Route: 048
  22. SERTRALINE [Concomitant]
     Active Substance: SERTRALINE HYDROCHLORIDE
     Route: 048
     Dates: start: 20170119
  23. RENVELA [Concomitant]
     Active Substance: SEVELAMER CARBONATE
     Indication: Renal disorder
     Route: 048
     Dates: start: 2016
  24. RENVELA [Concomitant]
     Active Substance: SEVELAMER CARBONATE
     Indication: Renal disorder
     Dates: start: 20170119
  25. ALBUTEROL [Concomitant]
     Active Substance: ALBUTEROL
     Route: 065
  26. ZANTAC [Concomitant]
     Active Substance: RANITIDINE HYDROCHLORIDE
     Indication: Gastrooesophageal reflux disease
     Route: 065
     Dates: start: 20170119
  27. ASPIRIN [Concomitant]
     Active Substance: ASPIRIN
  28. CALCIUM CARBONATE [Concomitant]
     Active Substance: CALCIUM CARBONATE
     Dosage: 600 MG-200 INTL UNITS
     Dates: start: 20170119
  29. FLUOXETINE [Concomitant]
     Active Substance: FLUOXETINE HYDROCHLORIDE
  30. LORATADINE [Concomitant]
     Active Substance: LORATADINE
     Dates: start: 20170119
  31. NAPROXEN SODIUM [Concomitant]
     Active Substance: NAPROXEN SODIUM
  32. AMPICILLIN [Concomitant]
     Active Substance: AMPICILLIN
  33. MELATONIN [Concomitant]
     Active Substance: MELATONIN
     Dates: start: 20170119
  34. TYLENOL [Concomitant]
     Active Substance: ACETAMINOPHEN
     Dates: start: 20170119
  35. TYLENOL [Concomitant]
     Active Substance: ACETAMINOPHEN
  36. ACETAMINOPHEN-DIPHENHYDRAMINE [Concomitant]
     Dosage: 500 MG-25 MG DAILY
     Dates: start: 20170119
  37. AMOXICILLIN [Concomitant]
     Active Substance: AMOXICILLIN
     Dosage: 500 MG ONCE ONE HOUR BEFORE PROCEDURE/APPOINTMENT
  38. LOPERAMIDE [Concomitant]
     Active Substance: LOPERAMIDE
  39. CINNAMON [Concomitant]
     Active Substance: CINNAMON
     Dates: start: 20170119
  40. MECLIZINE [Concomitant]
     Active Substance: MECLIZINE HYDROCHLORIDE
     Dosage: 25 MG AS NEEDED
  41. MIDODRINE [Concomitant]
     Active Substance: MIDODRINE
  42. RESVERATROL/CHOLINE/CHROMIUM/NICOTINAMIDE/ACETYLCYSTEINE/MANGANESE/THI [Concomitant]
     Dates: start: 20170119
  43. FERROUS SULFATE [Concomitant]
     Active Substance: FERROUS SULFATE
     Dosage: 65 MG AS NEEDED
  44. GLUCOSAMINE [Concomitant]
     Active Substance: GLUCOSAMINE
  45. ONDANSETRON [Concomitant]
     Active Substance: ONDANSETRON
     Dates: start: 20170119
  46. CALCITRIOL [Concomitant]
     Active Substance: CALCITRIOL
     Dosage: 0.25 MCG DAILY
     Dates: start: 20150602
  47. CEFAZOLIN [Concomitant]
     Active Substance: CEFAZOLIN
     Dates: start: 20170209
  48. DOCUSATE [Concomitant]
     Active Substance: DOCUSATE
     Dates: start: 20170209
  49. CETIRIZINE HYDROCHLORIDE [Concomitant]
     Active Substance: CETIRIZINE HYDROCHLORIDE
     Dates: start: 20170209
  50. ADRENAL CORTICAL EXTRACT/PANCREAS EXTRACT/EPHEDRINE/PHENOBARBITAL/ACET [Concomitant]
     Dates: start: 20170209
  51. PHENYLEPHRINE [Concomitant]
     Active Substance: PHENYLEPHRINE HYDROCHLORIDE
     Dosage: 100 MCG
     Dates: start: 20170209
  52. FENTANYL [Concomitant]
     Active Substance: FENTANYL
     Dosage: 100 MCG
     Dates: start: 20170209
  53. PROPOFOL [Concomitant]
     Active Substance: PROPOFOL
     Dosage: 150 MG
     Dates: start: 20170209
  54. MIDAZOLAM [Concomitant]
     Active Substance: MIDAZOLAM
     Dates: start: 20170209
  55. MIDAZOLAM [Concomitant]
     Active Substance: MIDAZOLAM
     Dosage: 10ML/KG DAILY
     Dates: start: 20100323
  56. CYCLOBENZAPRINE [Concomitant]
     Active Substance: CYCLOBENZAPRINE
     Route: 048
     Dates: start: 20171220
  57. ACETAMINOPHEN\OXYCODONE HYDROCHLORIDE [Concomitant]
     Active Substance: ACETAMINOPHEN\OXYCODONE HYDROCHLORIDE
  58. TRAMADOL [Concomitant]
     Active Substance: TRAMADOL
  59. HYDROMORPHONE [Concomitant]
     Active Substance: HYDROMORPHONE
  60. HYDROCODONE/PARACETAMOL/ETHANOL [Concomitant]
  61. LORAZEPAM [Concomitant]
     Active Substance: LORAZEPAM
  62. NABUMETONE [Concomitant]
     Active Substance: NABUMETONE
  63. TRIAMCINOLONE [Concomitant]
     Active Substance: TRIAMCINOLONE

REACTIONS (9)
  - Acute kidney injury [Not Recovered/Not Resolved]
  - End stage renal disease [Not Recovered/Not Resolved]
  - Renal failure [Unknown]
  - Nephrogenic anaemia [Unknown]
  - Chronic kidney disease [Unknown]
  - Hyperparathyroidism secondary [Unknown]
  - Tubulointerstitial nephritis [Not Recovered/Not Resolved]
  - Nephropathy [Unknown]
  - Renal hypertension [Unknown]

NARRATIVE: CASE EVENT DATE: 20140625
